FAERS Safety Report 11691269 (Version 1)
Quarter: 2015Q4

REPORT INFORMATION
  Report Type: Spontaneous
  Country: IT (occurrence: IT)
  Receive Date: 20151102
  Receipt Date: 20151102
  Transmission Date: 20160304
  Serious: Yes (Other)
  Sender: FDA-Public Use
  Company Number: IT-VALIDUS PHARMACEUTICALS LLC-IT-2015VAL000666

PATIENT
  Age: 50 Year
  Sex: Female

DRUGS (1)
  1. METOPROLOL TARTRATE. [Suspect]
     Active Substance: METOPROLOL TARTRATE
     Indication: HYPERTENSION
     Dosage: 100 MG, QD
     Route: 048
     Dates: start: 2004

REACTIONS (4)
  - Hallucination [Unknown]
  - Fatigue [Unknown]
  - Insomnia [Unknown]
  - Nightmare [Unknown]
